FAERS Safety Report 6394337-7 (Version None)
Quarter: 2009Q4

REPORT INFORMATION
  Report Type: 
  Country: None (occurrence: None)
  Receive Date: 20091006
  Receipt Date: 20091001
  Transmission Date: 20100525
  Serious: Yes (Life-Threatening, Hospitalization, Other)
  Sender: FDA-Public Use
  Company Number: 2009SP005867

PATIENT
  Age: 74 Year
  Sex: Female
  Weight: 80.5 kg

DRUGS (12)
  1. TEMODAL [Suspect]
     Indication: GLIOBLASTOMA
     Dosage: 230 MG
     Dates: start: 20090207
  2. TEMODAL [Suspect]
     Indication: GLIOBLASTOMA
     Dosage: 230 MG
     Dates: start: 20090307
  3. BISOHEXAL PLUS /01166101/ [Concomitant]
  4. RAMIPRIL [Concomitant]
  5. DEXAMETHASONE TAB [Concomitant]
  6. MELPERON [Concomitant]
  7. PANTOZOL [Concomitant]
  8. SIMVASTATIN [Concomitant]
  9. COTRIM [Concomitant]
  10. DETRUSITOL [Concomitant]
  11. MAGNESIUM VERLA /00648601/ [Concomitant]
  12. DEXAMETHASONE [Concomitant]

REACTIONS (9)
  - APHASIA [None]
  - GENERAL PHYSICAL HEALTH DETERIORATION [None]
  - HEMIPARESIS [None]
  - LYMPHOPENIA [None]
  - NEUROLOGICAL SYMPTOM [None]
  - PARANOIA [None]
  - PNEUMONIA [None]
  - THROMBOCYTOPENIA [None]
  - URINARY TRACT INFECTION [None]
